FAERS Safety Report 6671871-3 (Version None)
Quarter: 2010Q2

REPORT INFORMATION
  Report Type: 
  Country: None (occurrence: None)
  Receive Date: 20100407
  Receipt Date: 20100326
  Transmission Date: 20101027
  Serious: Yes (Other)
  Sender: FDA-Public Use
  Company Number: US-PFIZER INC-2010040035

PATIENT
  Weight: 77.098 kg

DRUGS (2)
  1. XALATAN [Suspect]
     Dosage: 1 DROP IN EACH EYE
     Dates: start: 20090407
  2. NAPROXEN [Concomitant]
     Indication: PAIN
     Dosage: UNK

REACTIONS (2)
  - DRUG INEFFECTIVE [None]
  - PROSTATIC SPECIFIC ANTIGEN INCREASED [None]
